FAERS Safety Report 20854996 (Version 1)
Quarter: 2022Q2

REPORT INFORMATION
  Report Type: Spontaneous
  Country: US (occurrence: None)
  Receive Date: 20220520
  Receipt Date: 20220520
  Transmission Date: 20220721
  Serious: Yes (Hospitalization)
  Sender: FDA-Public Use
  Company Number: None

PATIENT
  Sex: Female

DRUGS (20)
  1. TOBRAMYCIN [Suspect]
     Active Substance: TOBRAMYCIN
     Indication: Bronchiectasis
     Dosage: 300 MG.5ML ??INHALE 5ML VIA NEBULIZER EVERY 12 HOURS FOR 28 DAYS ON AND 28 DAYS OFF.
     Route: 055
     Dates: start: 20210910
  2. ADVAIR HFA [Concomitant]
     Active Substance: FLUTICASONE PROPIONATE\SALMETEROL XINAFOATE
  3. ALBUTEROL SULFATE [Concomitant]
     Active Substance: ALBUTEROL SULFATE
  4. AMLODIPINE TAB [Concomitant]
  5. BUDESONIDE SUS [Concomitant]
  6. ESOMEPRAZOLE MAGNESIUM [Concomitant]
     Active Substance: ESOMEPRAZOLE MAGNESIUM
  7. EUCALYPTUS OIL [Concomitant]
     Active Substance: EUCALYPTUS OIL
  8. FLUOCINONIDE [Concomitant]
     Active Substance: FLUOCINONIDE
  9. FUROSEMIDE TAB [Concomitant]
  10. HYDROCOD/HOM SYP [Concomitant]
  11. HYDROXYCHLOR TAB [Concomitant]
  12. IPRATROPIUM/SOL ALBUTER [Concomitant]
  13. LEVAQUIN TAB [Concomitant]
  14. NEXIUM [Concomitant]
  15. PLAQUENIL [Concomitant]
     Active Substance: HYDROXYCHLOROQUINE SULFATE
  16. PREVNAR [Concomitant]
     Active Substance: PNEUMOCOCCAL 7-VALENT CONJUGATE VACCINE (DIPHTHERIA CRM197 PROTEIN)
  17. PROVENTIL HFA [Concomitant]
     Active Substance: ALBUTEROL SULFATE
  18. SYNTHROID TAB [Concomitant]
  19. TENIVAC INJ [Concomitant]
  20. TOBRAMYCIN [Concomitant]
     Active Substance: TOBRAMYCIN

REACTIONS (2)
  - Tinnitus [None]
  - Pneumonia [None]

NARRATIVE: CASE EVENT DATE: 20220501
